FAERS Safety Report 8132447-4 (Version None)
Quarter: 2012Q1

REPORT INFORMATION
  Report Type: 
  Country: None (occurrence: None)
  Receive Date: 20120208
  Receipt Date: 20120202
  Transmission Date: 20120608
  Serious: Yes (Hospitalization)
  Sender: FDA-Public Use
  Company Number: 2012SP006677

PATIENT
  Age: 48 Year
  Sex: Female

DRUGS (1)
  1. REMERON [Suspect]
     Indication: PRODUCT USED FOR UNKNOWN INDICATION
     Dosage: 15MG, QD, PO
     Route: 048
     Dates: end: 20120101

REACTIONS (3)
  - MANIA [None]
  - ABNORMAL BEHAVIOUR [None]
  - DELIRIUM TREMENS [None]
